FAERS Safety Report 4937252-5 (Version None)
Quarter: 2006Q1

REPORT INFORMATION
  Report Type: 
  Country: None (occurrence: None)
  Receive Date: 20060309
  Receipt Date: 20060224
  Transmission Date: 20060701
  Serious: Yes (Other)
  Sender: FDA-Public Use
  Company Number: CA-JNJFOC-20060205931

PATIENT
  Age: 11 Year
  Sex: Male

DRUGS (5)
  1. CONCERTA [Suspect]
     Indication: DRUG USE FOR UNKNOWN INDICATION
  2. ADDERALL XR 10 [Suspect]
  3. ADDERALL XR 10 [Suspect]
  4. ADDERALL XR 10 [Suspect]
  5. ADDERALL XR 10 [Suspect]
     Indication: DRUG USE FOR UNKNOWN INDICATION

REACTIONS (8)
  - CEREBRAL INFARCTION [None]
  - CONFUSIONAL STATE [None]
  - DECREASED APPETITE [None]
  - DIPLOPIA [None]
  - FATIGUE [None]
  - MUSCULAR WEAKNESS [None]
  - SLEEP DISORDER [None]
  - URINARY INCONTINENCE [None]
